FAERS Safety Report 5428514-6 (Version None)
Quarter: 2007Q3

REPORT INFORMATION
  Report Type: 
  Country: None (occurrence: None)
  Receive Date: 20070731
  Receipt Date: 20070430
  Transmission Date: 20080115
  Serious: No
  Sender: FDA-Public Use
  Company Number: US200705000101

PATIENT
  Age: 80 Year
  Sex: Male
  Weight: 90.7 kg

DRUGS (10)
  1. BYETTA [Suspect]
     Indication: WEIGHT DECREASED
     Dosage: 5 UG, 2/D, SUBCUTANEOUS
     Route: 058
     Dates: start: 20070401, end: 20070401
  2. EXENATIDE 5MCG PEN, DISPOSABLE DEVICE (EXENATIDE PEN (5MCG)) PEN,DISPO [Concomitant]
  3. INSULIN ACTRAPHAN HUMAN (INSULIN HUMAN INJECTION, ISOPHANE) [Concomitant]
  4. HUMALOG [Concomitant]
  5. HYTRIN [Concomitant]
  6. BETAPACE [Concomitant]
  7. FORTAMET (METFORMIN HYDROCHLORIDE) [Concomitant]
  8. ACTOS /USA/ (PIOGLITAZONE HYDROCHLORIDE) [Concomitant]
  9. COZAAR [Concomitant]
  10. ACIPHEX [Concomitant]

REACTIONS (4)
  - DIARRHOEA [None]
  - DIZZINESS [None]
  - MALAISE [None]
  - NAUSEA [None]
